FAERS Safety Report 9489994 (Version 1)
Quarter: 2013Q3

REPORT INFORMATION
  Report Type: Spontaneous
  Country: CO (occurrence: CO)
  Receive Date: 20130829
  Receipt Date: 20130829
  Transmission Date: 20140515
  Serious: Yes (Hospitalization)
  Sender: FDA-Public Use
  Company Number: CO-ROCHE-1268170

PATIENT
  Sex: Female

DRUGS (3)
  1. LUCENTIS [Suspect]
     Indication: RETINAL DEGENERATION
     Route: 050
     Dates: start: 20120913
  2. LOSARTAN [Concomitant]
     Route: 065
  3. EUTIROX [Concomitant]
     Route: 065

REACTIONS (1)
  - Intestinal obstruction [Recovered/Resolved]
